FAERS Safety Report 5688142-4 (Version None)
Quarter: 2008Q1

REPORT INFORMATION
  Report Type: 
  Country: None (occurrence: None)
  Receive Date: 20080327
  Receipt Date: 20080311
  Transmission Date: 20080703
  Serious: Yes (Death, Other)
  Sender: FDA-Public Use
  Company Number: 2008US000525

PATIENT
  Age: 76 Year
  Sex: Male

DRUGS (11)
  1. AMBISOME [Suspect]
     Indication: BRONCHOPULMONARY ASPERGILLOSIS
     Dosage: 100 MG, UID/QD, IV NOS
     Route: 042
     Dates: start: 20070426, end: 20070501
  2. ITRACONAZOLE [Concomitant]
  3. MARZULENE S (LEVOGLUTAMIDE, SODIUM GUALENATE) [Concomitant]
  4. DISOPYRAMIDE PHOSPHATE [Concomitant]
  5. ROHYPNOL (FLUNITRAZEPAM) [Concomitant]
  6. ALOSENN (TARAXACUM OFFICINALE, ACHILLEA MILLEFOLIUM, SENNA ALEXANDRINA [Concomitant]
  7. SLOW-FE (FERROUS SULFATE) [Concomitant]
  8. ALLOID G (SODIUM ALGINATE) [Concomitant]
  9. LANSOPRAZOLE [Concomitant]
  10. GASTROM (ECABET MONOSODIUM) [Concomitant]
  11. CIPROFLOXACIN HCL [Concomitant]

REACTIONS (10)
  - ALANINE AMINOTRANSFERASE INCREASED [None]
  - ASPARTATE AMINOTRANSFERASE INCREASED [None]
  - BLOOD POTASSIUM INCREASED [None]
  - DRUG INEFFECTIVE [None]
  - GENERAL PHYSICAL HEALTH DETERIORATION [None]
  - HAEMATOCRIT DECREASED [None]
  - HAEMOGLOBIN DECREASED [None]
  - PNEUMONIA [None]
  - RED BLOOD CELL COUNT DECREASED [None]
  - RESPIRATORY FAILURE [None]
